FAERS Safety Report 7646002-3 (Version None)
Quarter: 2011Q3

REPORT INFORMATION
  Report Type: 
  Country: None (occurrence: None)
  Receive Date: 20110731
  Receipt Date: 20110726
  Transmission Date: 20111222
  Serious: Yes (Hospitalization)
  Sender: FDA-Public Use
  Company Number: US-B.I. PHARMACEUTICALS,INC./RIDGEFIELD-2011-BP-18500BP

PATIENT
  Sex: Female

DRUGS (14)
  1. METOPROLOL TARTRATE [Concomitant]
     Indication: ATRIAL FIBRILLATION
  2. TRAZODONE HCL [Concomitant]
     Indication: SLEEP DISORDER
  3. CARTIA XT [Concomitant]
     Indication: ATRIAL FIBRILLATION
  4. ZOLOFT [Concomitant]
     Indication: NERVOUSNESS
  5. AMITIZA [Concomitant]
     Indication: CONSTIPATION
  6. METFORMIN HCL [Concomitant]
     Indication: DIABETES MELLITUS
  7. PRADAXA [Suspect]
     Indication: ATRIAL FIBRILLATION
     Dosage: 300 MG
     Route: 048
     Dates: start: 20101101
  8. LORTAB [Concomitant]
     Indication: INTERVERTEBRAL DISC PROTRUSION
  9. INSULIN [Concomitant]
     Indication: DIABETES MELLITUS
  10. LASIX [Concomitant]
     Indication: SWELLING
  11. PRADAXA [Suspect]
     Indication: CEREBROVASCULAR ACCIDENT
  12. DIGOXIN [Concomitant]
     Indication: ATRIAL FIBRILLATION
  13. SIMVASTATIN [Concomitant]
     Indication: BLOOD CHOLESTEROL INCREASED
  14. POTASSIUM [Concomitant]
     Indication: SUPPLEMENTATION THERAPY

REACTIONS (5)
  - FLATULENCE [None]
  - DIARRHOEA [None]
  - DYSPEPSIA [None]
  - HEART RATE INCREASED [None]
  - CONSTIPATION [None]
